FAERS Safety Report 10284993 (Version 1)
Quarter: 2014Q3

REPORT INFORMATION
  Report Type: Spontaneous
  Country: BR (occurrence: BR)
  Receive Date: 20140708
  Receipt Date: 20140708
  Transmission Date: 20150326
  Serious: Yes (Hospitalization, Other)
  Sender: FDA-Public Use
  Company Number: BR-009507513-1407BRA003550

PATIENT
  Sex: Female
  Weight: 68 kg

DRUGS (1)
  1. VYTORIN [Suspect]
     Active Substance: EZETIMIBE\SIMVASTATIN
     Indication: BLOOD CHOLESTEROL INCREASED
     Dosage: 1 DF, QD
     Route: 048
     Dates: end: 201401

REACTIONS (9)
  - Poor peripheral circulation [Recovered/Resolved]
  - Urinary tract infection [Not Recovered/Not Resolved]
  - Drug interaction [Unknown]
  - Blood triglycerides increased [Not Recovered/Not Resolved]
  - Convulsion [Recovering/Resolving]
  - Medical induction of coma [Recovered/Resolved]
  - Laboratory test abnormal [Not Recovered/Not Resolved]
  - Intraocular pressure increased [Not Recovered/Not Resolved]
  - Peripheral swelling [Recovered/Resolved]

NARRATIVE: CASE EVENT DATE: 2010
